FAERS Safety Report 24444941 (Version 2)
Quarter: 2024Q4

REPORT INFORMATION
  Report Type: Report from Study
  Country: US (occurrence: US)
  Receive Date: 20241016
  Receipt Date: 20241017
  Transmission Date: 20250114
  Serious: No
  Sender: ROCHE
  Company Number: US-ROCHE-2985432

PATIENT
  Age: 34 Year
  Sex: Male

DRUGS (3)
  1. RITUXAN [Suspect]
     Active Substance: RITUXIMAB
     Indication: Crohn^s disease
     Dosage: DATE OF SERVICE: 12/APR/2021 AND19/APR/2021 DOSE WAS 700MG, 31/AUG/2021 DOSE WAS 500 MG.
     Route: 041
  2. RITUXAN [Suspect]
     Active Substance: RITUXIMAB
     Indication: Granulomatosis with polyangiitis
     Dosage: (STRENGTH: 10MG/ML), 600 MG INFUSE WEEKLY
     Route: 042
  3. RITUXAN [Suspect]
     Active Substance: RITUXIMAB
     Dosage: THEN EVERY 6 WEEKS. DATE OF SERVICE: 18/APR/2024 AND 02/MAY/2024.
     Route: 042

REACTIONS (2)
  - Off label use [Unknown]
  - No adverse event [Unknown]
